FAERS Safety Report 10074360 (Version 1)
Quarter: 2014Q2

REPORT INFORMATION
  Report Type: Spontaneous
  Country: US (occurrence: US)
  Receive Date: 20140411
  Receipt Date: 20140411
  Transmission Date: 20141212
  Serious: No
  Sender: FDA-Public Use
  Company Number: US-SANOFI-AVENTIS-2013SA057083

PATIENT
  Age: 17 Year
  Sex: Female

DRUGS (1)
  1. ALLEGRA-D, 12 HR [Suspect]
     Indication: HYPERSENSITIVITY
     Dosage: DOSAGE: 60 MG/ 120 MG
     Route: 048

REACTIONS (2)
  - Medication residue present [Unknown]
  - Drug ineffective [Unknown]
